FAERS Safety Report 23924359 (Version 1)
Quarter: 2024Q2

REPORT INFORMATION
  Report Type: Spontaneous
  Country: US (occurrence: None)
  Receive Date: 20240530
  Receipt Date: 20240530
  Transmission Date: 20240716
  Serious: Yes (Other)
  Sender: FDA-Public Use
  Company Number: None

PATIENT
  Age: 68 Year
  Sex: Female

DRUGS (1)
  1. JAKAFI [Suspect]
     Active Substance: RUXOLITINIB
     Dosage: 1 TOT - TOTAL TWICE A DAY ORAL
     Route: 048
     Dates: start: 20240401

REACTIONS (1)
  - Illness [None]

NARRATIVE: CASE EVENT DATE: 20240530
